FAERS Safety Report 21995040 (Version 1)
Quarter: 2023Q1

REPORT INFORMATION
  Report Type: Spontaneous
  Country: IT (occurrence: IT)
  Receive Date: 20230215
  Receipt Date: 20230215
  Transmission Date: 20230418
  Serious: Yes (Hospitalization)
  Sender: FDA-Public Use
  Company Number: IT-GLAXOSMITHKLINE-IT2023EME019536

PATIENT
  Age: 4 Year
  Sex: Male

DRUGS (1)
  1. AMOXICILLIN\CLAVULANATE POTASSIUM [Suspect]
     Active Substance: AMOXICILLIN\CLAVULANATE POTASSIUM
     Indication: Antibiotic therapy
     Dosage: UNK
     Route: 048

REACTIONS (3)
  - Purulent discharge [Recovered/Resolved]
  - Scrotal erythema [Recovered/Resolved]
  - Scrotal pain [Recovered/Resolved]
